FAERS Safety Report 11989940 (Version 1)
Quarter: 2016Q1

REPORT INFORMATION
  Report Type: Spontaneous
  Country: US (occurrence: US)
  Receive Date: 20160202
  Receipt Date: 20160202
  Transmission Date: 20160526
  Serious: No
  Sender: FDA-Public Use
  Company Number: US-ROCHE-1586938

PATIENT
  Sex: Male
  Weight: 33.87 kg

DRUGS (1)
  1. NUTROPIN AQ [Suspect]
     Active Substance: SOMATROPIN
     Indication: DWARFISM
     Dosage: NUSPIN 10
     Route: 058
     Dates: start: 20150122

REACTIONS (2)
  - Malaise [Recovered/Resolved]
  - Abdominal pain upper [Recovered/Resolved]
